FAERS Safety Report 9189659 (Version 3)
Quarter: 2013Q3

REPORT INFORMATION
  Report Type: Spontaneous
  Country: US (occurrence: US)
  Receive Date: 20130326
  Receipt Date: 20130722
  Transmission Date: 20140515
  Serious: Yes (Life-Threatening, Hospitalization, Other)
  Sender: FDA-Public Use
  Company Number: US-BAYER-2013-037698

PATIENT
  Age: 40 Year
  Sex: Female
  Weight: 63.49 kg

DRUGS (2)
  1. YASMIN [Suspect]
     Indication: ACNE
     Dosage: UNK
     Dates: start: 200302, end: 200305
  2. DEMEROL [Concomitant]

REACTIONS (9)
  - Pulmonary embolism [None]
  - Pain [None]
  - Pain [None]
  - Pulmonary fibrosis [None]
  - Dyspnoea [None]
  - Back pain [None]
  - Chest pain [None]
  - Chest discomfort [None]
  - Nausea [None]
